FAERS Safety Report 8597528-X (Version None)
Quarter: 2012Q3

REPORT INFORMATION
  Report Type: 
  Country: None (occurrence: None)
  Receive Date: 20120816
  Receipt Date: 20120809
  Transmission Date: 20120928
  Serious: No
  Sender: FDA-Public Use
  Company Number: US-BAYER-2012-081907

PATIENT

DRUGS (4)
  1. ALEVE (CAPLET) [Suspect]
     Indication: HEADACHE
     Dosage: 2 DF, UNK
     Route: 048
  2. IMITREX [Concomitant]
  3. TRAMADOL HCL [Concomitant]
     Dosage: 2 DF, UNK
  4. VICODIN [Concomitant]
     Dosage: 1/2 DF

REACTIONS (1)
  - NO ADVERSE EVENT [None]
